FAERS Safety Report 20127309 (Version 7)
Quarter: 2022Q1

REPORT INFORMATION
  Report Type: Report from Study
  Country: ES (occurrence: ES)
  Receive Date: 20211129
  Receipt Date: 20220203
  Transmission Date: 20220423
  Serious: Yes (Hospitalization)
  Sender: FDA-Public Use
  Company Number: ES-PFIZER INC-202101620265

PATIENT
  Age: 63 Year
  Sex: Female
  Weight: 77.4 kg

DRUGS (4)
  1. METHYLPREDNISOLONE SODIUM SUCCINATE [Suspect]
     Active Substance: METHYLPREDNISOLONE SODIUM SUCCINATE
     Dosage: 125 MG, 1X/DAY
     Route: 042
     Dates: start: 20211109, end: 20211110
  2. PF-06863135 [Suspect]
     Active Substance: PF-06863135
     Indication: Plasma cell myeloma
     Dosage: 12 MG, ONCE
     Route: 058
     Dates: start: 20211021, end: 20211021
  3. PF-06863135 [Suspect]
     Active Substance: PF-06863135
     Dosage: 32 MG, ONCE
     Route: 058
     Dates: start: 20211027, end: 20211027
  4. DEXAMETHASONE [Suspect]
     Active Substance: DEXAMETHASONE
     Dosage: 10 MG, 4X/DAY (Q6H)
     Route: 042
     Dates: start: 20211101, end: 20211101

REACTIONS (1)
  - Cytomegalovirus infection reactivation [Recovered/Resolved]

NARRATIVE: CASE EVENT DATE: 20211110
